FAERS Safety Report 4908981-4 (Version None)
Quarter: 2006Q1

REPORT INFORMATION
  Report Type: 
  Country: None (occurrence: None)
  Receive Date: 20060209
  Receipt Date: 20031203
  Transmission Date: 20060701
  Serious: Yes (Life-Threatening, Hospitalization)
  Sender: FDA-Public Use
  Company Number: HQ2699912JUN2002

PATIENT
  Age: 38 Year
  Sex: Male

DRUGS (3)
  1. MYLOTARG [Suspect]
     Indication: ACUTE MYELOID LEUKAEMIA
     Dosage: 13 MG 1X PER 1 DAY, INTRAVENOUS
     Route: 042
     Dates: start: 20020520, end: 20020520
  2. CYTARABINE [Concomitant]
  3. DAUNORUBICIN HYDROCHLORIDE [Concomitant]

REACTIONS (5)
  - ACUTE RESPIRATORY DISTRESS SYNDROME [None]
  - ANOREXIA [None]
  - BLOOD PRESSURE SYSTOLIC INCREASED [None]
  - HYPOXIA [None]
  - INFECTION [None]
